FAERS Safety Report 5456394-1 (Version None)
Quarter: 2007Q3

REPORT INFORMATION
  Report Type: 
  Country: None (occurrence: None)
  Receive Date: 20070918
  Receipt Date: 20070914
  Transmission Date: 20080115
  Serious: Yes (Life-Threatening)
  Sender: FDA-Public Use
  Company Number: IT-ASTRAZENECA-2007SE04842

PATIENT
  Age: 28713 Day
  Sex: Female

DRUGS (6)
  1. ZESTRIL [Suspect]
     Indication: CARDIAC FAILURE
     Route: 048
     Dates: start: 20070612, end: 20070829
  2. KCL RETARD [Suspect]
     Indication: HYPOKALAEMIA
     Route: 048
     Dates: start: 20070804, end: 20070829
  3. LASIX [Suspect]
     Indication: CARDIAC FAILURE
     Route: 048
     Dates: start: 20061201, end: 20070819
  4. CARVEDIOL [Concomitant]
     Route: 048
  5. LANOXIN [Concomitant]
     Route: 048
  6. CORDARONE [Concomitant]
     Route: 048
     Dates: start: 20070701, end: 20070829

REACTIONS (5)
  - BRADYCARDIA [None]
  - HYPERKALAEMIA [None]
  - METABOLIC ACIDOSIS [None]
  - ORTHOSTATIC HYPOTENSION [None]
  - RENAL FAILURE ACUTE [None]
